FAERS Safety Report 8198265-6 (Version None)
Quarter: 2012Q1

REPORT INFORMATION
  Report Type: 
  Country: None (occurrence: None)
  Receive Date: 20120309
  Receipt Date: 20120302
  Transmission Date: 20120608
  Serious: Yes (Other)
  Sender: FDA-Public Use
  Company Number: PHHY2012CA019567

PATIENT
  Sex: Female

DRUGS (2)
  1. SANDOSTATIN [Concomitant]
     Indication: CARCINOID TUMOUR
     Route: 058
     Dates: start: 20120101
  2. AFINITOR [Suspect]
     Indication: CARCINOID TUMOUR
     Dosage: 10 MG, DAILY
     Route: 048
     Dates: start: 20120101

REACTIONS (3)
  - CENTRAL NERVOUS SYSTEM NEOPLASM [None]
  - TUMOUR PAIN [None]
  - DRUG INEFFECTIVE [None]
